FAERS Safety Report 4961843-9 (Version None)
Quarter: 2006Q1

REPORT INFORMATION
  Report Type: 
  Country: None (occurrence: None)
  Receive Date: 20060329
  Receipt Date: 20060316
  Transmission Date: 20060701
  Serious: Yes (Hospitalization)
  Sender: FDA-Public Use
  Company Number: 221059

PATIENT
  Age: 57 Year
  Sex: Female
  Weight: 88 kg

DRUGS (2)
  1. RAPTIVA [Suspect]
     Indication: PSORIASIS
     Dosage: SEE IMAGE
     Route: 058
     Dates: start: 20021001, end: 20031021
  2. RAPTIVA [Suspect]
     Indication: PSORIASIS
     Dosage: SEE IMAGE
     Route: 058
     Dates: start: 20040104, end: 20051205

REACTIONS (9)
  - BLOOD GLUCOSE INCREASED [None]
  - CONDITION AGGRAVATED [None]
  - DRUG INEFFECTIVE [None]
  - FATIGUE [None]
  - LETHARGY [None]
  - PSORIASIS [None]
  - PYREXIA [None]
  - SHOULDER PAIN [None]
  - WHITE BLOOD CELL COUNT INCREASED [None]
